FAERS Safety Report 20329334 (Version 1)
Quarter: 2022Q1

REPORT INFORMATION
  Report Type: Spontaneous
  Country: US (occurrence: None)
  Receive Date: 20220112
  Receipt Date: 20220112
  Transmission Date: 20220424
  Serious: Yes (unspecified)
  Sender: FDA-Public Use
  Company Number: None

PATIENT
  Age: 22 Year
  Sex: Male
  Weight: 59.69 kg

DRUGS (5)
  1. RISPERIDONE [Suspect]
     Active Substance: RISPERIDONE
     Indication: Intermittent explosive disorder
     Dosage: FREQUENCY : TWICE A DAY;?
     Route: 048
     Dates: start: 20170221, end: 20211028
  2. STRIBILD [Concomitant]
     Active Substance: COBICISTAT\ELVITEGRAVIR\EMTRICITABINE\TENOFOVIR DISOPROXIL FUMARATE
     Dates: start: 20170221
  3. Folic acid 1 mg [Concomitant]
     Dates: start: 20170221
  4. cyanocobalamin 500 mcg [Concomitant]
     Dates: start: 20170221
  5. omega 1200 mg [Concomitant]
     Dates: start: 20170922

REACTIONS (3)
  - Aspartate aminotransferase increased [None]
  - Hepatic steatosis [None]
  - Hepatic steatosis [None]

NARRATIVE: CASE EVENT DATE: 20211020
